FAERS Safety Report 5938182-2 (Version None)
Quarter: 2008Q4

REPORT INFORMATION
  Report Type: 
  Country: None (occurrence: None)
  Receive Date: 20081031
  Receipt Date: 20081020
  Transmission Date: 20090506
  Serious: Yes (Other)
  Sender: FDA-Public Use
  Company Number: US-PFIZER INC-2008088856

PATIENT
  Sex: Male

DRUGS (1)
  1. CHANTIX [Suspect]
     Dates: start: 20070901

REACTIONS (10)
  - AGGRESSION [None]
  - ANXIETY [None]
  - BLINDNESS [None]
  - COGNITIVE DISORDER [None]
  - EYE HAEMORRHAGE [None]
  - MEMORY IMPAIRMENT [None]
  - MOOD SWINGS [None]
  - NEPHROLITHIASIS [None]
  - PAPILLOEDEMA [None]
  - UNEVALUABLE EVENT [None]
